FAERS Safety Report 8839160 (Version 4)
Quarter: 2013Q1

REPORT INFORMATION
  Report Type: Spontaneous
  Country: US (occurrence: US)
  Receive Date: 20121015
  Receipt Date: 20130329
  Transmission Date: 20140127
  Serious: No
  Sender: FDA-Public Use
  Company Number: US-009507513-1210USA005540

PATIENT
  Age: 54 None
  Sex: Male

DRUGS (8)
  1. VICTRELIS [Suspect]
     Indication: HEPATITIS C
     Dosage: 800 MG, Q8H
     Route: 048
     Dates: start: 20120926
  2. VICTRELIS [Suspect]
     Indication: CHRONIC HEPATITIS C
     Dosage: 800 MG, 3 TIMES A DAY
     Route: 048
     Dates: start: 20121008
  3. VICTRELIS [Suspect]
     Dosage: 800 MG, 3 TIMES A DAY
     Route: 048
     Dates: start: 20121008
  4. PEGASYS [Suspect]
     Dosage: UNK
     Dates: start: 20120911
  5. RIBAPAK [Suspect]
     Dosage: UNK
     Dates: start: 20120911
  6. ATENOLOL [Concomitant]
  7. CITALOPRAM [Concomitant]
  8. ALKA-SELTZER [Concomitant]

REACTIONS (15)
  - Epistaxis [Unknown]
  - Throat irritation [Unknown]
  - Nausea [Unknown]
  - Vomiting [Unknown]
  - Fatigue [Not Recovered/Not Resolved]
  - Dyskinesia [Unknown]
  - Restlessness [Unknown]
  - Memory impairment [Unknown]
  - Depression [Not Recovered/Not Resolved]
  - Headache [Unknown]
  - Pain [Unknown]
  - Anaemia [Not Recovered/Not Resolved]
  - Vomiting [Unknown]
  - Decreased appetite [Unknown]
  - Drug dose omission [Unknown]
